FAERS Safety Report 5268355-6 (Version None)
Quarter: 2007Q1

REPORT INFORMATION
  Report Type: 
  Country: None (occurrence: None)
  Receive Date: 20070314
  Receipt Date: 20070314
  Transmission Date: 20070707
  Serious: Yes (Hospitalization)
  Sender: FDA-Public Use
  Company Number: None

PATIENT
  Sex: Male
  Weight: 14.5 kg

DRUGS (1)
  1. VINCRISTINE SULFATE [Suspect]
     Dosage: 3.6 MG

REACTIONS (7)
  - ABASIA [None]
  - ARTHRALGIA [None]
  - ASTHENIA [None]
  - BONE SCAN ABNORMAL [None]
  - CORTICAL LAMINAR NECROSIS [None]
  - IRRITABILITY [None]
  - NUCLEAR MAGNETIC RESONANCE IMAGING BRAIN ABNORMAL [None]
